FAERS Safety Report 4535581-0 (Version None)
Quarter: 2004Q4

REPORT INFORMATION
  Report Type: 
  Country: None (occurrence: None)
  Receive Date: 20041214
  Receipt Date: 20041015
  Transmission Date: 20050328
  Serious: No
  Sender: FDA-Public Use
  Company Number: 2004240299US

PATIENT

DRUGS (9)
  1. BEXTRA [Suspect]
     Indication: OSTEOARTHRITIS
     Dosage: 10 MG, QD, ORAL
     Route: 048
     Dates: start: 20041014
  2. LOPRESSOR [Concomitant]
  3. ALTACE [Concomitant]
  4. NORVASC [Concomitant]
  5. COUMADIN [Concomitant]
  6. MULTIVITAMIN AND MINERAL SUPPLEMENT (VITAMIN NOS) [Concomitant]
  7. MULTIVITAMIN [Concomitant]
  8. DARVOCET-N 100 [Concomitant]
  9. VIOXX [Concomitant]

REACTIONS (2)
  - ERYTHEMA [None]
  - HEADACHE [None]
